FAERS Safety Report 8315557-8 (Version None)
Quarter: 2012Q2

REPORT INFORMATION
  Report Type: 
  Country: None (occurrence: None)
  Receive Date: 20120426
  Receipt Date: 20120420
  Transmission Date: 20120825
  Serious: Yes (Death, Hospitalization)
  Sender: FDA-Public Use
  Company Number: US-AMGEN-USASP2011005297

PATIENT
  Sex: Female
  Weight: 85.6 kg

DRUGS (1)
  1. SENSIPAR [Suspect]
     Indication: HYPERPARATHYROIDISM SECONDARY
     Dosage: 30 MG, QOD
     Route: 048
     Dates: start: 20100920

REACTIONS (3)
  - HIP FRACTURE [None]
  - HOSPITALISATION [None]
  - DEATH [None]
